FAERS Safety Report 25726171 (Version 1)
Quarter: 2025Q3

REPORT INFORMATION
  Report Type: Report from Study
  Country: CA (occurrence: None)
  Receive Date: 20250826
  Receipt Date: 20250826
  Transmission Date: 20251021
  Serious: Yes (Other)
  Sender: ORION
  Company Number: CA-PFIZER INC-202500167983

PATIENT
  Age: 13 Year
  Sex: Male

DRUGS (6)
  1. METHOTREXATE [Suspect]
     Active Substance: METHOTREXATE
     Indication: Product used for unknown indication
  2. ACTEMRA [Suspect]
     Active Substance: TOCILIZUMAB
     Indication: Juvenile idiopathic arthritis
     Dosage: CYCLICAL
  3. ACTEMRA [Suspect]
     Active Substance: TOCILIZUMAB
     Indication: Uveitis
  4. ACTEMRA [Suspect]
     Active Substance: TOCILIZUMAB
     Indication: Polyarthritis
  5. BRINZOLAMIDE-TIMOLOL MALEATE [Concomitant]
  6. LEFLUNOMIDE [Concomitant]
     Active Substance: LEFLUNOMIDE

REACTIONS (15)
  - Eye disorder [Unknown]
  - Ocular vascular disorder [Unknown]
  - Nausea [Unknown]
  - Vomiting [Unknown]
  - Off label use [Unknown]
  - Anterior chamber flare [Unknown]
  - Aphakia [Unknown]
  - Elschnig^s bodies [Unknown]
  - Intraocular pressure increased [Unknown]
  - Iris adhesions [Unknown]
  - Keratic precipitates [Unknown]
  - Keratopathy [Unknown]
  - Vitreous floaters [Unknown]
  - Product use in unapproved indication [Unknown]
  - Product use issue [Unknown]
